FAERS Safety Report 19296883 (Version 1)
Quarter: 2021Q2

REPORT INFORMATION
  Report Type: Spontaneous
  Country: US (occurrence: US)
  Receive Date: 20210524
  Receipt Date: 20210524
  Transmission Date: 20210717
  Serious: Yes (Hospitalization, Other)
  Sender: FDA-Public Use
  Company Number: US-PURDUE-USA-2020-0170658

PATIENT
  Sex: Female

DRUGS (2)
  1. PERCOCET                           /00446701/ [Suspect]
     Active Substance: ACETAMINOPHEN\OXYCODONE HYDROCHLORIDE\OXYCODONE TEREPHTHALATE
     Indication: PAIN
  2. OXYCONTIN [Suspect]
     Active Substance: OXYCODONE HYDROCHLORIDE
     Indication: PAIN
     Dosage: UNK
     Route: 048

REACTIONS (14)
  - Fear [Unknown]
  - Drug abuse [Unknown]
  - Overdose [Unknown]
  - Drug dependence [Unknown]
  - Post-traumatic stress disorder [Unknown]
  - Amnesia [Unknown]
  - General physical health deterioration [Unknown]
  - Anxiety [Unknown]
  - Withdrawal syndrome [Unknown]
  - Aggression [Unknown]
  - Euphoric mood [Unknown]
  - Emotional distress [Unknown]
  - Depression [Unknown]
  - Product prescribing issue [Unknown]
